FAERS Safety Report 6897488-3 (Version None)
Quarter: 2010Q3

REPORT INFORMATION
  Report Type: 
  Country: None (occurrence: None)
  Receive Date: 20100802
  Receipt Date: 20070604
  Transmission Date: 20110219
  Serious: No
  Sender: FDA-Public Use
  Company Number: US-PFIZER INC-2007045706

PATIENT
  Sex: Female

DRUGS (1)
  1. LYRICA [Suspect]
     Dates: start: 20070501

REACTIONS (5)
  - AGITATION [None]
  - ANXIETY [None]
  - FEELING ABNORMAL [None]
  - IRRITABILITY [None]
  - WEIGHT INCREASED [None]
